FAERS Safety Report 25773724 (Version 4)
Quarter: 2025Q4

REPORT INFORMATION
  Report Type: Spontaneous
  Country: JP (occurrence: JP)
  Receive Date: 20250908
  Receipt Date: 20251030
  Transmission Date: 20260118
  Serious: Yes (Hospitalization, Other)
  Sender: PFIZER
  Company Number: JP-PFIZER INC-202500176582

PATIENT
  Age: 15 Year
  Sex: Male
  Weight: 45.2 kg

DRUGS (2)
  1. CIBINQO [Suspect]
     Active Substance: ABROCITINIB
     Indication: Dermatitis atopic
     Dosage: 100 MG, 1X/DAY, EVERY DAY
     Route: 048
     Dates: start: 202208, end: 20250730
  2. OLOPATADINE [Concomitant]
     Active Substance: OLOPATADINE
     Indication: Rhinitis allergic
     Dosage: 1 DF, 2X/DAY, EVERY DAY

REACTIONS (3)
  - Rhabdomyolysis [Recovered/Resolved]
  - Blood creatine phosphokinase increased [Recovered/Resolved with Sequelae]
  - Renal disorder [Recovered/Resolved with Sequelae]

NARRATIVE: CASE EVENT DATE: 20250731
